FAERS Safety Report 8679257 (Version 5)
Quarter: 2012Q4

REPORT INFORMATION
  Report Type: 
  Country: US (occurrence: US)
  Receive Date: 20120724
  Receipt Date: 20121030
  Transmission Date: 20130627
  Serious: Yes (Life-Threatening, Hospitalization, Other)
  Sender: FDA-Public Use
  Company Number: PHEH2012US011792

PATIENT
  Sex: Female

DRUGS (10)
  1. TASIGNA [Suspect]
     Indication: SOFT TISSUE NEOPLASM
     Dosage: 400 mg, BID
     Route: 048
     Dates: start: 20120605
  2. LASIX [Concomitant]
  3. DIGITEK [Concomitant]
  4. SIMVASTATIN [Concomitant]
  5. ASA [Concomitant]
  6. TRAMADOL [Concomitant]
  7. LEVOTHYROXINE [Concomitant]
  8. PRAVASTATIN [Concomitant]
  9. PLAVIX [Concomitant]
  10. ACIDOPHILUS ^ZYMA^ [Concomitant]

REACTIONS (14)
  - Neoplasm progression [Not Recovered/Not Resolved]
  - Neoplasm malignant [Not Recovered/Not Resolved]
  - Haematemesis [Unknown]
  - Melaena [Unknown]
  - Visual impairment [Unknown]
  - Fatigue [Unknown]
  - Asthenia [Unknown]
  - Somnolence [Unknown]
  - Hypoaesthesia [Unknown]
  - Weight decreased [Unknown]
  - Paraesthesia [Unknown]
  - Lip swelling [Unknown]
  - Pigmentation disorder [Not Recovered/Not Resolved]
  - Drug ineffective [Unknown]
